FAERS Safety Report 6421587-3 (Version None)
Quarter: 2009Q4

REPORT INFORMATION
  Report Type: 
  Country: None (occurrence: None)
  Receive Date: 20091030
  Receipt Date: 20091022
  Transmission Date: 20100525
  Serious: Yes (Other)
  Sender: FDA-Public Use
  Company Number: US-JNJFOC-20091007841

PATIENT
  Age: 81 Year
  Sex: Male
  Weight: 77.11 kg

DRUGS (14)
  1. LEVAQUIN [Suspect]
     Indication: PROPHYLAXIS
     Route: 048
     Dates: start: 20091014
  2. COLACE [Concomitant]
     Indication: ABNORMAL FAECES
     Route: 048
  3. PRAVASTATIN [Concomitant]
     Indication: BLOOD CHOLESTEROL
  4. LASIX [Concomitant]
     Indication: FLUID RETENTION
     Route: 048
  5. NEVANAC [Concomitant]
     Indication: EYE DISORDER
  6. PRED FORTE [Concomitant]
     Indication: RETINAL DISORDER
  7. FLOMAX [Concomitant]
     Indication: PROSTATIC DISORDER
     Route: 048
  8. VICODIN [Concomitant]
     Indication: PAIN
  9. ANCEF [Concomitant]
     Indication: PROPHYLAXIS
     Route: 042
  10. COUMADIN [Concomitant]
     Indication: PROPHYLAXIS
     Route: 048
  11. ALLOPURINOL [Concomitant]
     Indication: GOUT
     Route: 048
  12. ASPIRIN [Concomitant]
     Indication: PROPHYLAXIS
     Route: 048
  13. ATENOLOL [Concomitant]
     Route: 048
  14. AVODART [Concomitant]
     Indication: PROSTATIC DISORDER
     Route: 048

REACTIONS (2)
  - EXTRASYSTOLES [None]
  - HEART RATE IRREGULAR [None]
